FAERS Safety Report 8337482-9 (Version None)
Quarter: 2012Q2

REPORT INFORMATION
  Report Type: 
  Country: None (occurrence: None)
  Receive Date: 20120504
  Receipt Date: 20120424
  Transmission Date: 20120825
  Serious: Yes (Life-Threatening, Disabling, Other)
  Sender: FDA-Public Use
  Company Number: JP-ROCHE-1035611

PATIENT
  Sex: Female
  Weight: 56 kg

DRUGS (2)
  1. NYROZIN [Concomitant]
     Dosage: DOSAGE IS UNCERTAIN.
     Route: 042
     Dates: start: 20111222, end: 20111222
  2. ROCEPHIN [Suspect]
     Indication: BRONCHITIS
     Route: 041
     Dates: start: 20111222, end: 20111222

REACTIONS (2)
  - ANAPHYLACTIC SHOCK [None]
  - POSTRESUSCITATION ENCEPHALOPATHY [None]
